FAERS Safety Report 7437358-5 (Version None)
Quarter: 2011Q2

REPORT INFORMATION
  Report Type: 
  Country: None (occurrence: None)
  Receive Date: 20110426
  Receipt Date: 20110414
  Transmission Date: 20111010
  Serious: Yes (Disabling)
  Sender: FDA-Public Use
  Company Number: PHHY2011US28255

PATIENT
  Sex: Female
  Weight: 94.785 kg

DRUGS (5)
  1. GILENYA [Suspect]
     Indication: RELAPSING-REMITTING MULTIPLE SCLEROSIS
     Dosage: 0.5 MG, QD
     Route: 048
     Dates: start: 20110328
  2. SYNTHROID [Concomitant]
     Indication: HYPOTHYROIDISM
     Dosage: 150 UG, DAILY
     Route: 048
     Dates: start: 20090403
  3. TYLENOL PM [Concomitant]
     Indication: ANALGESIC THERAPY
     Dosage: 325 MG, PRN
     Route: 048
     Dates: start: 20101102
  4. NAPROXEN (ALEVE) [Concomitant]
     Indication: ANALGESIC THERAPY
     Dosage: 220 MG, PRN
     Route: 048
     Dates: start: 20110404
  5. INTERFERON [Concomitant]
     Dosage: UNK

REACTIONS (2)
  - HEMIPARESIS [None]
  - NEUROPATHY PERIPHERAL [None]
